FAERS Safety Report 5310054-6 (Version None)
Quarter: 2007Q2

REPORT INFORMATION
  Report Type: 
  Country: None (occurrence: None)
  Receive Date: 20070427
  Receipt Date: 20070419
  Transmission Date: 20071010
  Serious: Yes (Hospitalization)
  Sender: FDA-Public Use
  Company Number: KR-GLAXOSMITHKLINE-B0464995A

PATIENT
  Age: 46 Year
  Sex: Female
  Weight: 41 kg

DRUGS (6)
  1. LAPATINIB [Suspect]
     Indication: BREAST CANCER METASTATIC
     Dosage: 1250MG PER DAY
     Route: 048
     Dates: start: 20070316
  2. CAPECITABINE [Suspect]
     Indication: BREAST CANCER METASTATIC
     Route: 048
     Dates: start: 20070315
  3. GEMCITABINE HCL [Concomitant]
  4. PACLITAXEL [Concomitant]
  5. RADIATION [Concomitant]
  6. TRASTUZUMAB [Concomitant]

REACTIONS (11)
  - ANOREXIA [None]
  - DISEASE PROGRESSION [None]
  - DYSPNOEA [None]
  - HYPOTENSION [None]
  - HYPOXIA [None]
  - MALIGNANT NEOPLASM PROGRESSION [None]
  - METASTASES TO ADRENALS [None]
  - METASTASES TO LIVER [None]
  - METASTASES TO LUNG [None]
  - METASTASES TO LYMPH NODES [None]
  - RALES [None]
